FAERS Safety Report 5154845-3 (Version None)
Quarter: 2006Q4

REPORT INFORMATION
  Report Type: 
  Country: None (occurrence: None)
  Receive Date: 20061121
  Receipt Date: 20061107
  Transmission Date: 20070319
  Serious: Yes (Other)
  Sender: FDA-Public Use
  Company Number: US-ELI_LILLY_AND_COMPANY-US200611002500

PATIENT
  Age: 49 Year
  Sex: Male
  Weight: 85.714 kg

DRUGS (3)
  1. GEMCITABINE HCL [Suspect]
     Indication: NON-SMALL CELL LUNG CANCER
  2. CARBOPLATIN [Concomitant]
     Indication: NON-SMALL CELL LUNG CANCER
  3. PACLITAXEL [Concomitant]
     Indication: NON-SMALL CELL LUNG CANCER

REACTIONS (3)
  - NEUTROPENIA [None]
  - OESOPHAGITIS [None]
  - THROMBOCYTOPENIA [None]
